FAERS Safety Report 8376842-7 (Version None)
Quarter: 2012Q2

REPORT INFORMATION
  Report Type: 
  Country: None (occurrence: None)
  Receive Date: 20120522
  Receipt Date: 20120514
  Transmission Date: 20120825
  Serious: Yes (Other)
  Sender: FDA-Public Use
  Company Number: JP-JNJFOC-20120513995

PATIENT
  Sex: Female
  Weight: 39 kg

DRUGS (11)
  1. SIMPONI [Suspect]
     Indication: RHEUMATOID ARTHRITIS
     Route: 058
     Dates: start: 20111108
  2. LANSOPRAZOLE [Concomitant]
     Indication: PROPHYLAXIS
     Route: 048
  3. NIFEDIPINE [Concomitant]
  4. METHOTREXATE [Concomitant]
     Indication: RHEUMATOID ARTHRITIS
     Dates: start: 20111108
  5. PREDNISOLONE [Concomitant]
     Indication: RHEUMATOID ARTHRITIS
     Route: 048
  6. CAMOSTAT MESILATE [Concomitant]
     Indication: PROPHYLAXIS
     Route: 048
  7. TELMISARTAN [Concomitant]
     Route: 048
  8. SITAGLIPTIN PHOSPHATE [Concomitant]
     Route: 048
  9. ALFACALCIDOL [Concomitant]
     Indication: PROPHYLAXIS
     Route: 048
  10. BUCILLAMINE [Concomitant]
     Indication: RHEUMATOID ARTHRITIS
     Route: 048
  11. FENOFIBRATE [Concomitant]
     Route: 048

REACTIONS (1)
  - RENAL DISORDER [None]
